FAERS Safety Report 4652840-1 (Version None)
Quarter: 2005Q2

REPORT INFORMATION
  Report Type: 
  Country: None (occurrence: None)
  Receive Date: 20050502
  Receipt Date: 20050425
  Transmission Date: 20051028
  Serious: Yes (Hospitalization)
  Sender: FDA-Public Use
  Company Number: 2005-127719-NL

PATIENT
  Age: 90 Year
  Sex: Female

DRUGS (4)
  1. MIRTAZAPINE [Suspect]
     Indication: DEPRESSION
     Dosage: 45 MG QD, ORAL
     Route: 048
     Dates: start: 20040414, end: 20050201
  2. LITHIUM CARBONATE [Concomitant]
  3. VALPROIC ACID [Concomitant]
  4. KETOVITE [Concomitant]

REACTIONS (2)
  - LOWER RESPIRATORY TRACT INFECTION [None]
  - WHITE BLOOD CELL COUNT DECREASED [None]
